FAERS Safety Report 12972208 (Version 1)
Quarter: 2016Q4

REPORT INFORMATION
  Report Type: Spontaneous
  Country: AU (occurrence: AU)
  Receive Date: 20161124
  Receipt Date: 20161124
  Transmission Date: 20170207
  Serious: Yes (Hospitalization, Other)
  Sender: FDA-Public Use
  Company Number: AU-ORION CORPORATION ORION PHARMA-TREX2016-2333

PATIENT
  Age: 70 Year
  Sex: Male

DRUGS (5)
  1. METHOTREXATE. [Suspect]
     Active Substance: METHOTREXATE
     Indication: RHEUMATOID ARTHRITIS
     Dosage: IN THREE DIVIDED DOSES OVER 24 HOURS
     Route: 048
  2. CIMETIDINE [Interacting]
     Active Substance: CIMETIDINE
     Route: 065
  3. METHOTREXATE. [Interacting]
     Active Substance: METHOTREXATE
     Route: 048
  4. PREDNISOLONE. [Concomitant]
     Active Substance: PREDNISOLONE
     Route: 065
  5. NAPROXEN. [Concomitant]
     Active Substance: NAPROXEN
     Route: 065

REACTIONS (7)
  - Respiratory tract infection [Unknown]
  - Drug interaction [Unknown]
  - Blood alkaline phosphatase increased [Recovered/Resolved]
  - Rheumatoid arthritis [Unknown]
  - Pancytopenia [Recovered/Resolved]
  - Cardiac failure congestive [Unknown]
  - Gamma-glutamyltransferase increased [Recovered/Resolved]
